FAERS Safety Report 9728076 (Version 2)
Quarter: 2014Q1

REPORT INFORMATION
  Report Type: Spontaneous
  Country: JP (occurrence: JP)
  Receive Date: 20131204
  Receipt Date: 20140210
  Transmission Date: 20141002
  Serious: Yes (Hospitalization)
  Sender: FDA-Public Use
  Company Number: PHHY2013JP140828

PATIENT
  Age: 86 Year
  Sex: Female

DRUGS (1)
  1. RIVASTIGMIN [Suspect]
     Indication: DEMENTIA ALZHEIMER^S TYPE
     Dosage: 9 MG, QD
     Route: 062

REACTIONS (2)
  - Femoral neck fracture [Unknown]
  - Application site dermatitis [Recovering/Resolving]
